FAERS Safety Report 10783889 (Version 1)
Quarter: 2015Q1

REPORT INFORMATION
  Report Type: Spontaneous
  Country: US (occurrence: US)
  Receive Date: 20150210
  Receipt Date: 20150210
  Transmission Date: 20150721
  Serious: Yes (Other)
  Sender: FDA-Public Use
  Company Number: US-CUBIST PHARMACEUTICALS, INC.-2015CBST000165

PATIENT

DRUGS (2)
  1. CUBICIN [Suspect]
     Active Substance: DAPTOMYCIN
     Indication: STAPHYLOCOCCAL OSTEOMYELITIS
     Dosage: UNK UNK, UNK
     Route: 042
     Dates: start: 201411
  2. CUBICIN [Suspect]
     Active Substance: DAPTOMYCIN
     Indication: OFF LABEL USE

REACTIONS (3)
  - Drug ineffective for unapproved indication [Unknown]
  - Toe amputation [None]
  - Off label use [Unknown]

NARRATIVE: CASE EVENT DATE: 201411
